FAERS Safety Report 9076628 (Version 1)
Quarter: 2013Q1

REPORT INFORMATION
  Report Type: Report from Study
  Country: US (occurrence: US)
  Receive Date: 20130129
  Receipt Date: 20130129
  Transmission Date: 20140127
  Serious: No
  Sender: FDA-Public Use
  Company Number: US-ABBOTT-12P-163-0946880-00

PATIENT
  Age: 72 Year
  Sex: Female

DRUGS (10)
  1. HUMIRA 40 MG/0.8 ML PEN [Suspect]
     Indication: CROHN^S DISEASE
     Dosage: LOADING DOSE
     Dates: start: 20120509
  2. VICODIN [Concomitant]
     Indication: PAIN
     Dosage: 325/500MG - 1 EVERY 8 HOURS
  3. CARBODOPALEVADOPA [Concomitant]
     Indication: RESTLESS LEGS SYNDROME
     Dosage: 25/100MG - 1.5TBALETS DAILY
  4. CLONAZEPAM [Concomitant]
     Indication: RESTLESS LEGS SYNDROME
     Dosage: 2MG DAILY
  5. SERTRALINE [Concomitant]
     Indication: DEPRESSION
     Dosage: 50MG DAILY
  6. HYDROCODONE [Concomitant]
     Indication: PAIN
     Dosage: 10/325MG - 1 TABLET EVERY 8 HOURS
  7. TRIAMT/HZTZ [Concomitant]
     Indication: FLUID RETENTION
     Dosage: 37.5/25MG DAILY
  8. CALCIUM WITH VIT D [Concomitant]
     Indication: MINERAL SUPPLEMENTATION
     Dosage: DAILY
  9. RESTASIS [Concomitant]
     Indication: DRY EYE
     Dosage: 1 DROP TO EACH EYE TWICE DAILY
  10. SUDAFED [Concomitant]
     Indication: HYPERSENSITIVITY

REACTIONS (1)
  - Feeling abnormal [Recovered/Resolved]
